FAERS Safety Report 7934009-8 (Version None)
Quarter: 2011Q4

REPORT INFORMATION
  Report Type: 
  Country: None (occurrence: None)
  Receive Date: 20111122
  Receipt Date: 20111110
  Transmission Date: 20120403
  Serious: Yes (Other)
  Sender: FDA-Public Use
  Company Number: US-ELI_LILLY_AND_COMPANY-US201111004613

PATIENT
  Age: 69 Year
  Sex: Male

DRUGS (9)
  1. TESTOSTERONE [Concomitant]
     Dosage: 75 MG, MONTHLY (1/M)
  2. CYMBALTA [Suspect]
     Dosage: 90 MG, UNK
     Dates: start: 20101101
  3. CYMBALTA [Suspect]
     Dosage: 60 MG, UNK
  4. STRATTERA [Suspect]
     Indication: MEMORY IMPAIRMENT
     Dosage: UNK
     Dates: start: 20101101, end: 20110101
  5. GABAPENTIN [Concomitant]
     Indication: DIABETIC NEUROPATHY
     Dosage: 100 MG, TID
  6. OXYCODONE HCL [Concomitant]
  7. ADDERALL 5 [Concomitant]
  8. CYMBALTA [Suspect]
     Indication: DEPRESSION
     Dosage: UNK
     Dates: start: 20101001
  9. DRUG USED IN DIABETES [Concomitant]
     Indication: DIABETES MELLITUS

REACTIONS (2)
  - VASCULAR DEMENTIA [None]
  - CEREBROVASCULAR ACCIDENT [None]
